FAERS Safety Report 4353713-4 (Version None)
Quarter: 2004Q2

REPORT INFORMATION
  Report Type: 
  Country: None (occurrence: None)
  Receive Date: 20040430
  Receipt Date: 20040419
  Transmission Date: 20050107
  Serious: Yes (Death)
  Sender: FDA-Public Use
  Company Number: 2004026529

PATIENT
  Age: 32 Year
  Sex: Male

DRUGS (1)
  1. ZITHROMAX [Suspect]
     Indication: DENTAL TREATMENT

REACTIONS (3)
  - CARDIAC DISORDER [None]
  - CARDIAC FAILURE [None]
  - PULMONARY OEDEMA [None]
